FAERS Safety Report 4828209-3 (Version None)
Quarter: 2005Q4

REPORT INFORMATION
  Report Type: 
  Country: None (occurrence: None)
  Receive Date: 20051115
  Receipt Date: 20051109
  Transmission Date: 20060501
  Serious: Yes (Other)
  Sender: FDA-Public Use
  Company Number: ES-GLAXOSMITHKLINE-B0400291A

PATIENT
  Age: 50 Year
  Sex: Male

DRUGS (2)
  1. AUGMENTIN [Suspect]
     Indication: SINUSITIS
     Route: 048
  2. QUINOLONE [Concomitant]

REACTIONS (2)
  - CLOSTRIDIUM COLITIS [None]
  - WEIGHT DECREASED [None]
